FAERS Safety Report 9562520 (Version 1)
Quarter: 2013Q3

REPORT INFORMATION
  Report Type: Spontaneous
  Country: BE (occurrence: BE)
  Receive Date: 20130927
  Receipt Date: 20130927
  Transmission Date: 20140515
  Serious: Yes (Other)
  Sender: FDA-Public Use
  Company Number: BE-UCBSA-098227

PATIENT
  Sex: Male

DRUGS (2)
  1. KEPPRA [Suspect]
     Indication: EPILEPSY
     Dates: start: 2011
  2. NO CONCOMITANT MEDICATION [Concomitant]

REACTIONS (1)
  - Toxicity to various agents [Not Recovered/Not Resolved]
